FAERS Safety Report 13144636 (Version 1)
Quarter: 2017Q1

REPORT INFORMATION
  Report Type: Report from Study
  Country: US (occurrence: US)
  Receive Date: 20170124
  Receipt Date: 20170124
  Transmission Date: 20170428
  Serious: Yes (Death, Other)
  Sender: FDA-Public Use
  Company Number: US-009507513-1612USA006588

PATIENT
  Sex: Male

DRUGS (3)
  1. LYNPARZA [Suspect]
     Active Substance: OLAPARIB
     Indication: URETHRAL CANCER METASTATIC
     Dosage: UNK
  2. KEYTRUDA [Suspect]
     Active Substance: PEMBROLIZUMAB
     Indication: URETHRAL CANCER METASTATIC
     Dosage: UNK
     Dates: start: 201601, end: 201606
  3. TECENTRIQ [Suspect]
     Active Substance: ATEZOLIZUMAB
     Indication: URETHRAL CANCER METASTATIC
     Dosage: UNK

REACTIONS (2)
  - Product use issue [Unknown]
  - Malignant neoplasm progression [Fatal]

NARRATIVE: CASE EVENT DATE: 2016
